FAERS Safety Report 22288808 (Version 2)
Quarter: 2023Q2

REPORT INFORMATION
  Report Type: Spontaneous
  Country: US (occurrence: US)
  Receive Date: 20230505
  Receipt Date: 20230512
  Transmission Date: 20230722
  Serious: No
  Sender: FDA-Public Use
  Company Number: US-BIOVITRUM-2023-US-010221

PATIENT
  Age: 82 Year
  Sex: Female

DRUGS (2)
  1. KINERET [Suspect]
     Active Substance: ANAKINRA
     Indication: Product used for unknown indication
     Dates: start: 20230415, end: 20230423
  2. KINERET [Suspect]
     Active Substance: ANAKINRA
     Dosage: 100MG/0.67ML DAILY
     Route: 058
     Dates: start: 20230410, end: 20230419

REACTIONS (4)
  - Rash [Unknown]
  - Erythema [Unknown]
  - Injection site mass [Unknown]
  - Injection site infection [Unknown]
